FAERS Safety Report 5137660-6 (Version None)
Quarter: 2006Q4

REPORT INFORMATION
  Report Type: 
  Country: None (occurrence: None)
  Receive Date: 20061030
  Receipt Date: 20051212
  Transmission Date: 20070319
  Serious: Yes (Life-Threatening, Other)
  Sender: FDA-Public Use
  Company Number: US-GLAXOSMITHKLINE-A0585514A

PATIENT
  Age: 5 Year
  Sex: Male
  Weight: 16.8 kg

DRUGS (4)
  1. ADVAIR HFA [Suspect]
     Indication: DYSPNOEA
     Route: 055
  2. ORAPRED [Concomitant]
     Indication: ASTHMA
     Route: 048
     Dates: start: 20051116
  3. SINGULAIR [Concomitant]
     Route: 048
     Dates: start: 20050818
  4. ALBUTEROL [Concomitant]
     Dosage: 2PUFF AS REQUIRED
     Route: 055

REACTIONS (4)
  - DYSPNOEA [None]
  - HYPERSENSITIVITY [None]
  - VOMITING [None]
  - WHEEZING [None]
